FAERS Safety Report 10308290 (Version 1)
Quarter: 2014Q3

REPORT INFORMATION
  Report Type: Spontaneous
  Country: ES (occurrence: None)
  Receive Date: 20140701
  Receipt Date: 20140701
  Transmission Date: 20150326
  Serious: Yes (Death)
  Sender: FDA-Public Use
  Company Number: GAM-217-14-ES

PATIENT
  Age: 66 Year
  Sex: Male

DRUGS (13)
  1. PANTOTHENIC ACID [Concomitant]
     Active Substance: PANTOTHENIC ACID
  2. LEVOTHYROXINE [Concomitant]
     Active Substance: LEVOTHYROXINE
  3. MEROPENEM. [Concomitant]
     Active Substance: MEROPENEM
  4. METHYLPREDNISOLONE [Concomitant]
     Active Substance: METHYLPREDNISOLONE
  5. CYANOCOBALAMINE [Concomitant]
  6. PYRIDOXINE [Concomitant]
     Active Substance: PYRIDOXINE
  7. OCTAGAMOCTA [Suspect]
     Active Substance: HUMAN IMMUNOGLOBULIN G
     Indication: HYPOGAMMAGLOBULINAEMIA
     Route: 042
     Dates: start: 20140514, end: 20140516
  8. BIOTIN [Concomitant]
     Active Substance: BIOTIN
  9. NICOTINAMIDE [Concomitant]
     Active Substance: NIACINAMIDE
  10. THIAMINE [Concomitant]
     Active Substance: THIAMINE
  11. RIBOFLAVIN [Concomitant]
     Active Substance: RIBOFLAVIN
  12. LINEZOLID. [Concomitant]
     Active Substance: LINEZOLID
  13. ASCORBIC ACID. [Concomitant]
     Active Substance: ASCORBIC ACID

REACTIONS (4)
  - Ischaemic stroke [None]
  - Aphasia [None]
  - Cerebral infarction [None]
  - Deep vein thrombosis [None]

NARRATIVE: CASE EVENT DATE: 20140516
